FAERS Safety Report 22383268 (Version 1)
Quarter: 2023Q2

REPORT INFORMATION
  Report Type: Other
  Country: CA (occurrence: CA)
  Receive Date: 20230530
  Receipt Date: 20230530
  Transmission Date: 20230721
  Serious: Yes (Other)
  Sender: FDA-Public Use
  Company Number: CA-PFIZER INC-202300060517

PATIENT
  Sex: Female

DRUGS (7)
  1. AZITHROMYCIN [Suspect]
     Active Substance: AZITHROMYCIN
     Dosage: 1 G, QD (REGIMEN 2)
     Route: 048
  2. DEXTROSE [Suspect]
     Active Substance: DEXTROSE\DEXTROSE MONOHYDRATE
     Dosage: UNK
     Route: 065
  3. AMPICILLIN [Suspect]
     Active Substance: AMPICILLIN
     Dosage: 1 G, Q6H (EVERY 6 HOURS)(REGIMEN 2)
     Route: 042
  4. ATOSIBAN [Suspect]
     Active Substance: ATOSIBAN
     Dosage: UNK
     Route: 065
  5. BETAMETHASONE [Suspect]
     Active Substance: BETAMETHASONE
     Dosage: 12 MG, Q24H (2 DOSES, 24 HOURS APART)
     Route: 030
  6. GENTAMICIN [Suspect]
     Active Substance: GENTAMICIN
     Dosage: 80 MG, Q8H (EVERY 8 HOURS) (REGIMEN 2)
     Route: 042
  7. MAGNESIUM SULFATE [Suspect]
     Active Substance: MAGNESIUM SULFATE
     Dosage: UNK
     Route: 065

REACTIONS (4)
  - Maternal exposure during pregnancy [Unknown]
  - Delivery [Unknown]
  - Normal labour [Unknown]
  - Premature delivery [Unknown]
